FAERS Safety Report 5637827-4 (Version None)
Quarter: 2008Q1

REPORT INFORMATION
  Report Type: 
  Country: None (occurrence: None)
  Receive Date: 20080225
  Receipt Date: 20080214
  Transmission Date: 20080703
  Serious: Yes (Death, Disabling)
  Sender: FDA-Public Use
  Company Number: JP-SANOFI-SYNTHELABO-A01200713165

PATIENT
  Sex: Female

DRUGS (13)
  1. DECADRON [Concomitant]
     Indication: PREMEDICATION
     Dosage: 8 MG
     Route: 042
     Dates: start: 20071023, end: 20071023
  2. DECADRON [Concomitant]
     Indication: PROPHYLAXIS OF NAUSEA AND VOMITING
     Dosage: 8 MG
     Route: 042
     Dates: start: 20071023, end: 20071023
  3. DECADRON [Concomitant]
     Dosage: 2 MG
     Route: 048
     Dates: start: 20071024, end: 20071025
  4. DECADRON [Concomitant]
     Dosage: 2 MG
     Route: 048
     Dates: start: 20071024, end: 20071025
  5. SEROTONE [Concomitant]
     Indication: PREMEDICATION
     Dosage: 10 MG
     Route: 048
     Dates: start: 20071023, end: 20071025
  6. SEROTONE [Concomitant]
     Indication: PROPHYLAXIS OF NAUSEA AND VOMITING
     Dosage: 10 MG
     Route: 048
     Dates: start: 20071023, end: 20071025
  7. ISOVORIN [Concomitant]
     Dosage: 250MG/BODY = 186.6MG/M2 AS INFUSION ON DAY 1
     Route: 042
     Dates: start: 20071023, end: 20071023
  8. ELPLAT [Suspect]
     Indication: COLON CANCER
     Dosage: 100MG/BODY = 74.6MG/M2 IN INFUSION ON DAY 1
     Route: 042
     Dates: start: 20071023, end: 20071023
  9. BIO-THREE [Concomitant]
     Indication: PROPHYLAXIS AGAINST DIARRHOEA
     Dosage: 2 DF
     Route: 048
     Dates: start: 20071023
  10. FLUOROURACIL [Suspect]
     Dosage: 500MG/BODY = 373.1MG/M2 IN BOLUS THEN 3250MG/BODY = 2425.4MG/M2 AS CONTINUOUS INFUSION ON DAY 1-2
     Route: 042
     Dates: start: 20071023, end: 20071023
  11. CATABON [Concomitant]
     Indication: SHOCK
     Dosage: 200 ML
     Route: 042
     Dates: start: 20071101, end: 20071101
  12. LOW-MOLECULAR DEXTRAN L [Concomitant]
     Indication: SHOCK
     Dosage: 500 ML
     Route: 042
     Dates: start: 20071101, end: 20071101
  13. MANNITOL [Concomitant]
     Indication: SHOCK
     Dosage: 300 ML
     Route: 042
     Dates: start: 20071101, end: 20071101

REACTIONS (4)
  - ALTERED STATE OF CONSCIOUSNESS [None]
  - BLOOD PRESSURE DECREASED [None]
  - CONVULSION [None]
  - RESPIRATORY FAILURE [None]
